FAERS Safety Report 8988761 (Version 3)
Quarter: 2013Q1

REPORT INFORMATION
  Report Type: Spontaneous
  Country: US (occurrence: US)
  Receive Date: 20121228
  Receipt Date: 20130314
  Transmission Date: 20140127
  Serious: Yes (Other)
  Sender: FDA-Public Use
  Company Number: US-BRISTOL-MYERS SQUIBB COMPANY-17158676

PATIENT
  Age: 60 Year
  Sex: Female

DRUGS (2)
  1. ORENCIA [Suspect]
     Indication: RHEUMATOID ARTHRITIS
     Dosage: LAST INF: 5NOV12,17DEC12 INF:2?INTER:25NOV2012
     Route: 042
  2. ORENCIA [Suspect]
     Indication: PSORIATIC ARTHROPATHY
     Dosage: LAST INF: 5NOV12,17DEC12 INF:2?INTER:25NOV2012
     Route: 042

REACTIONS (2)
  - Intervertebral disc degeneration [Recovered/Resolved]
  - Spinal column stenosis [Recovered/Resolved]
